FAERS Safety Report 20977658 (Version 1)
Quarter: 2022Q2

REPORT INFORMATION
  Report Type: Spontaneous
  Country: US (occurrence: US)
  Receive Date: 20220618
  Receipt Date: 20220618
  Transmission Date: 20220721
  Serious: No
  Sender: FDA-Public Use
  Company Number: US-JNJFOC-20220620583

PATIENT
  Age: 67 Year
  Sex: Male

DRUGS (1)
  1. ZYTIGA [Suspect]
     Active Substance: ABIRATERONE ACETATE
     Indication: Product used for unknown indication
     Dosage: 250 MG TABLETS 3 ONCE DAILY.
     Route: 048
     Dates: start: 20191009

REACTIONS (3)
  - Mobility decreased [Unknown]
  - Pain in extremity [Unknown]
  - Off label use [Unknown]
